FAERS Safety Report 10680220 (Version 2)
Quarter: 2014Q4

REPORT INFORMATION
  Report Type: Report from Study
  Country: DE (occurrence: DE)
  Receive Date: 20141229
  Receipt Date: 20141229
  Transmission Date: 20150529
  Serious: Yes (Hospitalization, Other)
  Sender: FDA-Public Use
  Company Number: DE-BAYER-2014-181100

PATIENT
  Age: 40 Year
  Sex: Female
  Weight: 58 kg

DRUGS (1)
  1. BETAFERON [Suspect]
     Active Substance: INTERFERON BETA-1B
     Indication: MULTIPLE SCLEROSIS
     Dosage: 250 ?G, QOD
     Route: 058
     Dates: start: 19960101, end: 20140901

REACTIONS (16)
  - Nocturia [None]
  - Renal function test abnormal [Not Recovered/Not Resolved]
  - Chronic kidney disease [None]
  - Oedema peripheral [None]
  - Hypertension [None]
  - Focal segmental glomerulosclerosis [None]
  - Thrombotic microangiopathy [None]
  - Cardiac failure [None]
  - Abscess limb [Recovering/Resolving]
  - Nephrogenic anaemia [None]
  - Renal function test abnormal [None]
  - Myocarditis [None]
  - Diffuse mesangial sclerosis [None]
  - Renal failure [None]
  - Nephrosclerosis [None]
  - Porphyria non-acute [None]

NARRATIVE: CASE EVENT DATE: 2010
